FAERS Safety Report 6633118-3 (Version None)
Quarter: 2010Q1

REPORT INFORMATION
  Report Type: 
  Country: None (occurrence: None)
  Receive Date: 20100312
  Receipt Date: 20100301
  Transmission Date: 20100710
  Serious: Yes (Hospitalization)
  Sender: FDA-Public Use
  Company Number: PHHY2010IT12805

PATIENT
  Sex: Female

DRUGS (9)
  1. VOLTADVANCE [Suspect]
     Dosage: 25 MG, ONCE/SINGLE
     Route: 048
     Dates: start: 20080518, end: 20080518
  2. ALMARYTM [Concomitant]
     Dosage: 100 MG, UNK
     Route: 048
  3. PEPTAZOL [Concomitant]
     Dosage: 20 MG, UNK
     Route: 048
  4. HUMULIN R [Concomitant]
     Dosage: 100 U/ML
  5. MOTILIUM [Concomitant]
  6. NATECAL [Concomitant]
  7. FERROGRAD C [Concomitant]
  8. PANTORC [Concomitant]
  9. ASPIRIN [Concomitant]

REACTIONS (4)
  - DYSARTHRIA [None]
  - GENERALISED ERYTHEMA [None]
  - PRURITUS [None]
  - SYNCOPE [None]
